FAERS Safety Report 5086329-5 (Version None)
Quarter: 2006Q3

REPORT INFORMATION
  Report Type: 
  Country: None (occurrence: None)
  Receive Date: 20060823
  Receipt Date: 20060807
  Transmission Date: 20061208
  Serious: Yes (Death, Hospitalization, Other)
  Sender: FDA-Public Use
  Company Number: PHEH2006US10156

PATIENT
  Age: 73 Year
  Sex: Female

DRUGS (3)
  1. FEMARA [Suspect]
     Indication: BREAST CANCER METASTATIC
     Dosage: 2.5 MG, QD
     Route: 048
     Dates: start: 20050308, end: 20050807
  2. AROMASIN [Concomitant]
     Dates: start: 20050712, end: 20050802
  3. TAXOTERE [Concomitant]
     Dosage: WEEKLY, LOW DOSE

REACTIONS (13)
  - APHASIA [None]
  - ASTHENIA [None]
  - BACK PAIN [None]
  - CEREBROVASCULAR ACCIDENT [None]
  - DEHYDRATION [None]
  - DRUG INEFFECTIVE [None]
  - HEMIPARESIS [None]
  - HYPOTENSION [None]
  - METASTASES TO URINARY TRACT [None]
  - NAUSEA [None]
  - PYREXIA [None]
  - VOMITING [None]
  - WEIGHT DECREASED [None]
